FAERS Safety Report 22638363 (Version 1)
Quarter: 2023Q2

REPORT INFORMATION
  Report Type: Spontaneous
  Country: US (occurrence: None)
  Receive Date: 20230623
  Receipt Date: 20230623
  Transmission Date: 20230721
  Serious: Yes (Disabling)
  Sender: FDA-Public Use
  Company Number: None

PATIENT
  Age: 61 Year
  Sex: Male
  Weight: 86.4 kg

DRUGS (3)
  1. SIMVASTATIN [Suspect]
     Active Substance: SIMVASTATIN
     Indication: Product used for unknown indication
     Dosage: OTHER QUANTITY : 1 CAPSULE(S);?FREQUENCY : DAILY;?
     Route: 048
     Dates: end: 20230530
  2. VIAGRA [Concomitant]
     Active Substance: SILDENAFIL CITRATE
  3. DEVICE [Concomitant]
     Active Substance: DEVICE

REACTIONS (3)
  - Weight decreased [None]
  - Muscle disorder [None]
  - Arthropathy [None]

NARRATIVE: CASE EVENT DATE: 20230401
